FAERS Safety Report 8186516-3 (Version None)
Quarter: 2012Q1

REPORT INFORMATION
  Report Type: 
  Country: None (occurrence: None)
  Receive Date: 20120306
  Receipt Date: 20120223
  Transmission Date: 20120608
  Serious: Yes (Hospitalization)
  Sender: FDA-Public Use
  Company Number: FR-JNJFOC-20120301629

PATIENT
  Age: 38 Year
  Sex: Female

DRUGS (8)
  1. CLONAZEPAM [Concomitant]
     Route: 065
     Dates: end: 20120101
  2. ZYVOX [Interacting]
     Indication: PRODUCT USED FOR UNKNOWN INDICATION
     Route: 048
     Dates: end: 20120101
  3. FLUCONAZOLE [Concomitant]
     Route: 065
     Dates: end: 20120101
  4. VITAMIN K TAB [Concomitant]
     Route: 048
     Dates: end: 20120101
  5. TRAMADOL HCL [Suspect]
     Indication: PRODUCT USED FOR UNKNOWN INDICATION
     Route: 048
     Dates: end: 20120101
  6. PIPERACILLIN AND TAZOBACTAM [Concomitant]
     Route: 042
     Dates: end: 20120101
  7. URBANYL [Concomitant]
     Route: 048
     Dates: end: 20120101
  8. NICARDIPINE HYDROCHLORIDE [Concomitant]
     Route: 065
     Dates: end: 20120101

REACTIONS (4)
  - HYPERTENSIVE CRISIS [None]
  - SEROTONIN SYNDROME [None]
  - DRUG INTERACTION [None]
  - CONVULSION [None]
